FAERS Safety Report 10421147 (Version 1)
Quarter: 2014Q3

REPORT INFORMATION
  Report Type: Spontaneous
  Country: GB (occurrence: GB)
  Receive Date: 20140830
  Receipt Date: 20140830
  Transmission Date: 20150326
  Serious: Yes (Death)
  Sender: FDA-Public Use
  Company Number: GB-AUROBINDO-AUR-APL-2014-09106

PATIENT
  Age: 35 Year
  Sex: Female

DRUGS (2)
  1. MIRTAZAPINE 30MG (MIRTAZAPINE) UNKNOWN, 30MG [Suspect]
     Active Substance: MIRTAZAPINE
     Indication: DEPRESSION
     Dosage: 30 MG
     Route: 048
  2. MIRTAZAPINE 30MG (MIRTAZAPINE) UNKNOWN, 30MG [Suspect]
     Active Substance: MIRTAZAPINE
     Indication: BIPOLAR DISORDER

REACTIONS (1)
  - Completed suicide [Fatal]

NARRATIVE: CASE EVENT DATE: 20130602
